FAERS Safety Report 23380916 (Version 1)
Quarter: 2024Q1

REPORT INFORMATION
  Report Type: Report from Study
  Country: US (occurrence: US)
  Receive Date: 20240109
  Receipt Date: 20240109
  Transmission Date: 20240409
  Serious: No
  Sender: FDA-Public Use
  Company Number: US-BIOVITRUM-2023-US-021478

PATIENT
  Age: 24 Month
  Sex: Male

DRUGS (1)
  1. SYNAGIS [Suspect]
     Active Substance: PALIVIZUMAB
     Indication: Premature baby
     Dosage: ONE TIME PER MONTH
     Route: 030
     Dates: start: 202311

REACTIONS (2)
  - Body temperature decreased [Unknown]
  - Product dose omission issue [Unknown]
